FAERS Safety Report 5425257-X (Version None)
Quarter: 2007Q3

REPORT INFORMATION
  Report Type: 
  Country: None (occurrence: None)
  Receive Date: 20070824
  Receipt Date: 20070815
  Transmission Date: 20080115
  Serious: Yes (Death, Hospitalization, Other)
  Sender: FDA-Public Use
  Company Number: US-PFIZER INC-2007044808

PATIENT
  Sex: Female
  Weight: 59 kg

DRUGS (1)
  1. CELEBREX [Suspect]
     Indication: CARDIAC DISORDER
     Dosage: TEXT:100MG AND 200MG
     Dates: start: 20000309, end: 20061121

REACTIONS (4)
  - CARDIOVASCULAR DISORDER [None]
  - DEATH [None]
  - HEART RATE IRREGULAR [None]
  - NAUSEA [None]
